FAERS Safety Report 4320978-4 (Version None)
Quarter: 2004Q1

REPORT INFORMATION
  Report Type: 
  Country: None (occurrence: None)
  Receive Date: 20040322
  Receipt Date: 20040322
  Transmission Date: 20041129
  Serious: Yes (Hospitalization)
  Sender: FDA-Public Use
  Company Number: None

PATIENT
  Age: 63 Year
  Sex: Male
  Weight: 64 kg

DRUGS (2)
  1. ACETYLCYSTEINE [Suspect]
     Indication: COMPUTERISED TOMOGRAM
     Dosage: 600 MG Q12 H ORAL
     Route: 048
     Dates: start: 20040319, end: 20040319
  2. ACETYLCYSTEINE [Suspect]
     Indication: PROPHYLAXIS
     Dosage: 600 MG Q12 H ORAL
     Route: 048
     Dates: start: 20040319, end: 20040319

REACTIONS (4)
  - HYPERTENSION [None]
  - PYREXIA [None]
  - TACHYCARDIA [None]
  - TACHYPNOEA [None]
